FAERS Safety Report 6846592-4 (Version None)
Quarter: 2010Q3

REPORT INFORMATION
  Report Type: 
  Country: None (occurrence: None)
  Receive Date: 20100712
  Receipt Date: 20100701
  Transmission Date: 20110219
  Serious: Yes (Hospitalization)
  Sender: FDA-Public Use
  Company Number: 2010US002621

PATIENT
  Age: 79 Year
  Sex: Male

DRUGS (12)
  1. VESICARE [Suspect]
     Indication: HYPERTONIC BLADDER
     Dosage: 5 MG, /D, ORAL; 10 MG, /D, ORAL
     Route: 048
     Dates: start: 20070701, end: 20100623
  2. VESICARE [Suspect]
     Indication: HYPERTONIC BLADDER
     Dosage: 5 MG, /D, ORAL; 10 MG, /D, ORAL
     Route: 048
     Dates: start: 20100624
  3. COUMADIN [Concomitant]
  4. GLUCOSAMIN CHONDR (CHONDROITIN SULFATE, GLUCOSAMINE SULFATE) [Concomitant]
  5. GLUCOPHAGE [Concomitant]
  6. ACTOS [Concomitant]
  7. GLIBEZIDE (GLIBEZIDE) [Concomitant]
  8. TOPROL-XL [Concomitant]
  9. ZETIA [Concomitant]
  10. METOPROLOL SUCCINATE [Concomitant]
  11. METFORMIN HCL [Concomitant]
  12. WARFARIN SODIUM [Concomitant]

REACTIONS (3)
  - BLADDER REPAIR [None]
  - HAEMORRHAGE [None]
  - THROMBOSIS [None]
